FAERS Safety Report 13042841 (Version 7)
Quarter: 2017Q2

REPORT INFORMATION
  Report Type: Report from Study
  Country: US (occurrence: US)
  Receive Date: 20161219
  Receipt Date: 20170620
  Transmission Date: 20170830
  Serious: Yes (Hospitalization)
  Sender: FDA-Public Use
  Company Number: US-ACTELION-A-US2016-140016

PATIENT
  Age: 59 Year
  Sex: Female
  Weight: 62.59 kg

DRUGS (5)
  1. REMODULIN [Suspect]
     Active Substance: TREPROSTINIL
     Indication: PRODUCT USED FOR UNKNOWN INDICATION
     Dosage: UNK
     Route: 042
     Dates: end: 20170529
  2. OPSUMIT [Suspect]
     Active Substance: MACITENTAN
     Indication: PULMONARY ARTERIAL HYPERTENSION
     Dosage: 10 MG, QD
     Route: 048
     Dates: start: 20160713
  3. COUMADIN [Concomitant]
     Active Substance: WARFARIN SODIUM
  4. ADCIRCA [Concomitant]
     Active Substance: TADALAFIL
  5. UPTRAVI [Concomitant]
     Active Substance: SELEXIPAG
     Indication: PULMONARY ARTERIAL HYPERTENSION
     Dosage: UNK
     Route: 048

REACTIONS (12)
  - Device related infection [Unknown]
  - Dizziness [Unknown]
  - Diarrhoea [Unknown]
  - Syncope [Unknown]
  - Malaise [Unknown]
  - Catheter site pain [Unknown]
  - Condition aggravated [Unknown]
  - Balance disorder [Unknown]
  - Sinusitis [Unknown]
  - Contusion [Unknown]
  - Pulmonary arterial hypertension [Unknown]
  - Dysentery [Unknown]
